FAERS Safety Report 4300512-5 (Version None)
Quarter: 2004Q1

REPORT INFORMATION
  Report Type: 
  Country: None (occurrence: None)
  Receive Date: 20040220
  Receipt Date: 20030204
  Transmission Date: 20041129
  Serious: Yes (Death, Hospitalization)
  Sender: FDA-Public Use
  Company Number: PHEH2003US01288

PATIENT
  Age: 90 Year
  Sex: Female

DRUGS (16)
  1. ZELNORM [Suspect]
     Indication: CONSTIPATION
     Dosage: 6 MG, TID
     Route: 048
     Dates: start: 20030128, end: 20030202
  2. PLAVIX [Concomitant]
     Dosage: 75 MG, QD
  3. NITROGLYCERIN ^PHARMACIA-UPJOHN^ [Concomitant]
     Dosage: UNK, PRN
  4. TYLENOL (CAPLET) [Concomitant]
     Dosage: UNK, PRN
  5. PHENERGAN [Concomitant]
     Dosage: UNK, PRN
  6. LACTULOSE [Concomitant]
     Dosage: UNK, PRN
  7. TUSSI-ORGANIDIN ^WALLACE^ [Concomitant]
     Dosage: UNK, PRN
  8. PEPTO-BISMOL [Concomitant]
     Dosage: UNK, PRN
  9. LORTAB [Concomitant]
     Dosage: UNK, PRN
  10. SYNTHROID [Concomitant]
     Dosage: .1 MG, QD
  11. GAVISCON [Concomitant]
     Dosage: UNK, QHS
  12. ALLOPURINOL [Concomitant]
     Dosage: 100 MG, QD
  13. CLONIDINE [Concomitant]
     Dosage: .1 MG, BID
  14. PROTONIX [Concomitant]
     Dosage: 40 MG, QD
  15. CITRUCEL [Concomitant]
  16. TOPROL-XL [Concomitant]
     Dosage: 25 MG, QD

REACTIONS (38)
  - ABDOMINAL PAIN [None]
  - ATRIAL NATRIURETIC PEPTIDE INCREASED [None]
  - BLOOD CREATININE INCREASED [None]
  - BLOOD UREA INCREASED [None]
  - BRAIN NATRIURETIC PEPTIDE INCREASED [None]
  - CARDIAC FAILURE CONGESTIVE [None]
  - CARDIOMEGALY [None]
  - CARDIOPULMONARY FAILURE [None]
  - CULTURE URINE POSITIVE [None]
  - DEPRESSED LEVEL OF CONSCIOUSNESS [None]
  - DIARRHOEA [None]
  - DISORIENTATION [None]
  - DYSPNOEA [None]
  - ELECTROCARDIOGRAM ABNORMAL [None]
  - ELECTROCARDIOGRAM ST-T CHANGE [None]
  - GASTROENTERITIS VIRAL [None]
  - GASTROINTESTINAL HAEMORRHAGE [None]
  - GENERAL PHYSICAL HEALTH DETERIORATION [None]
  - HAEMATEMESIS [None]
  - HAEMATOCRIT DECREASED [None]
  - HAEMOGLOBIN DECREASED [None]
  - HIATUS HERNIA [None]
  - LUNG INFILTRATION [None]
  - MULTI-ORGAN FAILURE [None]
  - NAUSEA [None]
  - OESOPHAGEAL HAEMORRHAGE [None]
  - PLEURAL EFFUSION [None]
  - PULMONARY OEDEMA [None]
  - RECTAL HAEMORRHAGE [None]
  - RESPIRATORY FAILURE [None]
  - SMALL INTESTINAL OBSTRUCTION [None]
  - TACHYCARDIA [None]
  - URINARY TRACT INFECTION [None]
  - URINARY TRACT INFECTION ENTEROCOCCAL [None]
  - UROSEPSIS [None]
  - VOMITING [None]
  - WHITE BLOOD CELL COUNT INCREASED [None]
  - WHITE BLOOD CELLS URINE POSITIVE [None]
